FAERS Safety Report 8014836-1 (Version None)
Quarter: 2011Q4

REPORT INFORMATION
  Report Type: 
  Country: None (occurrence: None)
  Receive Date: 20111229
  Receipt Date: 20111228
  Transmission Date: 20120403
  Serious: Yes (Life-Threatening, Other)
  Sender: FDA-Public Use
  Company Number: JP-PFIZER INC-2011234801

PATIENT
  Age: 55 Year
  Sex: Female
  Weight: 60 kg

DRUGS (8)
  1. LIPITOR [Suspect]
     Indication: DYSLIPIDAEMIA
     Dosage: 10 MG, 1X/DAY
     Route: 048
     Dates: start: 20110704, end: 20111001
  2. LANSOPRAZOLE [Concomitant]
     Dosage: 30 MG, DAILY
     Route: 048
     Dates: start: 20110714
  3. BISOLVON [Concomitant]
     Dosage: 20 MG, DAILY
     Route: 048
     Dates: start: 20110714
  4. ENALAPRIL MALEATE [Concomitant]
     Dosage: 5 MG, DAILY
     Route: 048
     Dates: start: 20110714
  5. VANCOMYCIN [Suspect]
     Indication: STAPHYLOCOCCAL INFECTION
     Dosage: 1 G, 2X/DAY
     Route: 042
     Dates: start: 20110902, end: 20110903
  6. BISOPROLOL FUMARATE [Concomitant]
     Dosage: 5 MG, DAILY
     Route: 048
     Dates: start: 20110714
  7. CEFAZOLIN SODIUM [Concomitant]
     Dosage: 3 MG, DAILY
     Route: 048
     Dates: start: 20110714
  8. MEDROL [Concomitant]
     Dosage: 4 MG, DAILY
     Route: 048
     Dates: start: 20110714

REACTIONS (10)
  - RENAL IMPAIRMENT [None]
  - ERYTHEMA [None]
  - INTERSTITIAL LUNG DISEASE [None]
  - BLOOD LACTATE DEHYDROGENASE INCREASED [None]
  - ALANINE AMINOTRANSFERASE INCREASED [None]
  - HYPERTHERMIA MALIGNANT [None]
  - RHABDOMYOLYSIS [None]
  - ASPARTATE AMINOTRANSFERASE INCREASED [None]
  - SYSTEMIC LUPUS ERYTHEMATOSUS [None]
  - BLOOD CREATINE PHOSPHOKINASE INCREASED [None]
